FAERS Safety Report 13209812 (Version 1)
Quarter: 2017Q1

REPORT INFORMATION
  Report Type: Spontaneous
  Country: US (occurrence: US)
  Receive Date: 20170209
  Receipt Date: 20170209
  Transmission Date: 20170428
  Serious: Yes (Other)
  Sender: FDA-Public Use
  Company Number: US-SAGENTPRD-2017-US-000020

PATIENT
  Sex: Female

DRUGS (3)
  1. CYCLOPENTOLATE EYE DROPS [Concomitant]
  2. CAFFEINE CITRATE ORAL SOLUTION [Suspect]
     Active Substance: CAFFEINE CITRATE
     Dosage: UNKNOWN
  3. PHENYLEPHRINE EYE DROPS [Concomitant]

REACTIONS (2)
  - Arrhythmia supraventricular [Unknown]
  - Bradycardia [Unknown]
